FAERS Safety Report 10800669 (Version 2)
Quarter: 2015Q1

REPORT INFORMATION
  Report Type: Spontaneous
  Country: US (occurrence: US)
  Receive Date: 20150216
  Receipt Date: 20150225
  Transmission Date: 20150721
  Serious: No
  Sender: FDA-Public Use
  Company Number: US-GILEAD-2015-0137343

PATIENT
  Age: 81 Year
  Sex: Female

DRUGS (1)
  1. LETAIRIS [Suspect]
     Active Substance: AMBRISENTAN
     Indication: PRODUCT USED FOR UNKNOWN INDICATION
     Dosage: 10 MG, QD
     Route: 065
     Dates: start: 201501

REACTIONS (5)
  - Dyspnoea [Not Recovered/Not Resolved]
  - Weight increased [Unknown]
  - Constipation [Unknown]
  - Oedema peripheral [Unknown]
  - Urine output decreased [Unknown]
